FAERS Safety Report 18669491 (Version 1)
Quarter: 2020Q4

REPORT INFORMATION
  Report Type: Spontaneous
  Country: US (occurrence: US)
  Receive Date: 20201228
  Receipt Date: 20201228
  Transmission Date: 20210114
  Serious: Yes (Other)
  Sender: FDA-Public Use
  Company Number: US-CLOVIS ONCOLOGY-CLO-2020-002374

PATIENT
  Sex: Female

DRUGS (1)
  1. RUBRACA [Suspect]
     Active Substance: RUCAPARIB CAMSYLATE
     Indication: ENDOMETRIAL CANCER
     Dosage: 600 MILLIGRAM, BID
     Route: 048
     Dates: start: 202008, end: 20201129

REACTIONS (2)
  - Product use in unapproved indication [Unknown]
  - Genitourinary tract neoplasm [Unknown]

NARRATIVE: CASE EVENT DATE: 2020
